FAERS Safety Report 10015340 (Version 1)
Quarter: 2014Q1

REPORT INFORMATION
  Report Type: Spontaneous
  Country: US (occurrence: US)
  Receive Date: 20140317
  Receipt Date: 20140317
  Transmission Date: 20141002
  Serious: Yes (Other)
  Sender: FDA-Public Use
  Company Number: US-PFIZER INC-2014076641

PATIENT
  Age: 65 Year
  Sex: Male

DRUGS (1)
  1. PRISTIQ [Suspect]
     Indication: BIPOLAR I DISORDER
     Dosage: UNK

REACTIONS (1)
  - Mania [Unknown]
